FAERS Safety Report 17026313 (Version 9)
Quarter: 2020Q1

REPORT INFORMATION
  Report Type: Report from Study
  Country: CA (occurrence: CA)
  Receive Date: 20191113
  Receipt Date: 20200331
  Transmission Date: 20200409
  Serious: Yes (Hospitalization, Disabling, Other)
  Sender: FDA-Public Use
  Company Number: CA-SA-2019SA183063

PATIENT
  Age: 66 Year
  Sex: Female
  Weight: 29.48 kg

DRUGS (12)
  1. METOPROLOL SALT NOT SPECIFIED [Suspect]
     Active Substance: METOPROLOL
     Indication: CARDIAC FLUTTER
     Dosage: 37.5MG AM / 25MG HS (AT NIGHT EVERYDAY)
     Route: 065
  2. METFORMIN [Concomitant]
     Active Substance: METFORMIN HYDROCHLORIDE
     Dosage: UNK, UNK
     Route: 065
  3. DUKORAL [Concomitant]
     Active Substance: CHOLERA VACCINE
     Dosage: UNK UNK, QW
     Route: 065
     Dates: start: 20190924
  4. EZETIMIBE. [Concomitant]
     Active Substance: EZETIMIBE
     Dosage: 10 MG; OD
     Route: 065
  5. METOPROLOL SALT NOT SPECIFIED [Suspect]
     Active Substance: METOPROLOL
     Dosage: 1.5 DF, BID
  6. CRESTOR [Concomitant]
     Active Substance: ROSUVASTATIN CALCIUM
     Dosage: 40 MG; OD
     Route: 065
  7. AGALSIDASE BETA [Suspect]
     Active Substance: AGALSIDASE BETA
     Indication: FABRY^S DISEASE
     Dosage: 65 MG, QOW
     Route: 041
     Dates: start: 20180620
  8. METOPROLOL SALT NOT SPECIFIED [Suspect]
     Active Substance: METOPROLOL
     Indication: HEART RATE IRREGULAR
     Dosage: 37.5MG AM / 25MG HS
     Route: 065
  9. METOPROLOL SALT NOT SPECIFIED [Suspect]
     Active Substance: METOPROLOL
     Dosage: 50 MG
     Route: 065
  10. HYDROCHLOROTHIAZIDE. [Concomitant]
     Active Substance: HYDROCHLOROTHIAZIDE
     Dosage: 12.5 MG, QD
     Route: 048
  11. ASA [Concomitant]
     Active Substance: ASPIRIN
     Dosage: 80 MG; OD
     Route: 065
  12. LOSARTAN. [Concomitant]
     Active Substance: LOSARTAN
     Dosage: 100 MG, OD
     Route: 065

REACTIONS (25)
  - Dizziness [Recovered/Resolved]
  - Dysuria [Recovered/Resolved]
  - Back injury [Unknown]
  - Loss of consciousness [Recovered/Resolved]
  - Arrhythmia [Not Recovered/Not Resolved]
  - Limb injury [Unknown]
  - Heart rate decreased [Unknown]
  - Angina pectoris [Not Recovered/Not Resolved]
  - Tachycardia [Recovered/Resolved]
  - Myocardial necrosis marker increased [Unknown]
  - Ventricular tachycardia [Not Recovered/Not Resolved]
  - Fall [Unknown]
  - Wrong product administered [Unknown]
  - Blood pressure decreased [Unknown]
  - Dizziness [Not Recovered/Not Resolved]
  - Impaired driving ability [Unknown]
  - Bladder pain [Recovered/Resolved]
  - Dehydration [Unknown]
  - Head injury [Unknown]
  - Anxiety [Unknown]
  - Ventricular extrasystoles [Unknown]
  - Chest pain [Recovering/Resolving]
  - Balance disorder [Unknown]
  - Dizziness [Unknown]
  - Heart rate increased [Recovered/Resolved]

NARRATIVE: CASE EVENT DATE: 201906
